FAERS Safety Report 16409021 (Version 1)
Quarter: 2019Q2

REPORT INFORMATION
  Report Type: Report from Study
  Country: AU (occurrence: AU)
  Receive Date: 20190610
  Receipt Date: 20190610
  Transmission Date: 20190711
  Serious: Yes (Other)
  Sender: FDA-Public Use
  Company Number: AU-ROCHE-2334186

PATIENT

DRUGS (1)
  1. ALTEPLASE. [Suspect]
     Active Substance: ALTEPLASE
     Indication: CEREBRAL INFARCTION
     Dosage: 0.9 MG PER KILOGRAM OF BODY WEIGHT [MAXIMUM, 90 MG], ADMINISTERED INTRAVENOUSLY AS A 10% BOLUS AND 9
     Route: 042

REACTIONS (1)
  - Pneumonia [Unknown]
